FAERS Safety Report 6502971-6 (Version None)
Quarter: 2009Q4

REPORT INFORMATION
  Report Type: 
  Country: None (occurrence: None)
  Receive Date: 20091217
  Receipt Date: 20091214
  Transmission Date: 20100525
  Serious: Yes (Death)
  Sender: FDA-Public Use
  Company Number: PHHY2009GB30996

PATIENT
  Sex: Male

DRUGS (6)
  1. CLOZARIL [Suspect]
     Indication: SCHIZOPHRENIA
     Dosage: 500 MG
     Route: 048
     Dates: start: 19920605
  2. LITHIUM CARBONATE [Concomitant]
     Dosage: 800 MG
     Route: 048
  3. SULPIRIDE [Concomitant]
     Dosage: 600MG
     Route: 048
  4. AMLODIPINE [Concomitant]
     Dosage: 5MG
     Route: 048
  5. LAMOTRIGINE [Concomitant]
     Dosage: 25MG
     Route: 048
  6. TOLTERODINE [Concomitant]
     Dosage: 4MG
     Route: 048

REACTIONS (2)
  - CARDIAC FAILURE CONGESTIVE [None]
  - HYPERTENSION [None]
